FAERS Safety Report 18950207 (Version 2)
Quarter: 2021Q2

REPORT INFORMATION
  Report Type: Spontaneous
  Country: US (occurrence: US)
  Receive Date: 20210228
  Receipt Date: 20210415
  Transmission Date: 20210717
  Serious: No
  Sender: FDA-Public Use
  Company Number: US-ASTRAZENECA-2021A071158

PATIENT
  Age: 24940 Day
  Sex: Female
  Weight: 78.9 kg

DRUGS (10)
  1. SPIRONOLACTONE. [Concomitant]
     Active Substance: SPIRONOLACTONE
  2. ASPIRIN. [Concomitant]
     Active Substance: ASPIRIN
  3. NORVASC [Concomitant]
     Active Substance: AMLODIPINE BESYLATE
  4. BYDUREON BCISE [Suspect]
     Active Substance: EXENATIDE
     Indication: DIABETES MELLITUS
     Route: 065
     Dates: start: 20210208
  5. LIPITOR [Concomitant]
     Active Substance: ATORVASTATIN CALCIUM
  6. FUROSEMIDE. [Concomitant]
     Active Substance: FUROSEMIDE
  7. LISINOPRIL. [Concomitant]
     Active Substance: LISINOPRIL
     Indication: HYPERTENSION
  8. COENZYME Q10 [Concomitant]
     Active Substance: DIETARY SUPPLEMENT\UBIDECARENONE
     Indication: CARDIAC DISORDER
  9. CARVEDILOL. [Concomitant]
     Active Substance: CARVEDILOL
     Indication: CARDIAC FAILURE CONGESTIVE
  10. MULTIVITAMIN [Concomitant]
     Active Substance: VITAMINS

REACTIONS (4)
  - Device issue [Unknown]
  - Injury associated with device [Unknown]
  - Intentional device misuse [Unknown]
  - Injection site haemorrhage [Unknown]

NARRATIVE: CASE EVENT DATE: 20210208
